FAERS Safety Report 21294723 (Version 1)
Quarter: 2022Q3

REPORT INFORMATION
  Report Type: Spontaneous
  Country: US (occurrence: None)
  Receive Date: 20220905
  Receipt Date: 20220905
  Transmission Date: 20221027
  Serious: No
  Sender: FDA-Public Use
  Company Number: 2022A295077

PATIENT
  Sex: Female

DRUGS (1)
  1. TEZSPIRE [Suspect]
     Active Substance: TEZEPELUMAB-EKKO
     Indication: Asthma
     Dosage: EVERY 4 WEEKS, FOR THE LAST 5-6 MONTHS
     Route: 058

REACTIONS (2)
  - Forced expiratory volume decreased [Unknown]
  - Rash [Unknown]
